FAERS Safety Report 17375188 (Version 1)
Quarter: 2020Q1

REPORT INFORMATION
  Report Type: Spontaneous
  Country: US (occurrence: US)
  Receive Date: 20200204
  Receipt Date: 20200204
  Transmission Date: 20200409
  Serious: Yes (Other)
  Sender: FDA-Public Use
  Company Number: None

PATIENT
  Age: 27 Year
  Sex: Female
  Weight: 83.91 kg

DRUGS (1)
  1. NEXPLANON [Suspect]
     Active Substance: ETONOGESTREL
     Indication: CONTRACEPTION
     Dates: start: 20170102, end: 20180101

REACTIONS (7)
  - Viral infection [None]
  - Haemorrhage [None]
  - Weight increased [None]
  - Mood swings [None]
  - Menstruation irregular [None]
  - Nausea [None]
  - Ovarian cyst [None]

NARRATIVE: CASE EVENT DATE: 20180120
